FAERS Safety Report 8337143-6 (Version None)
Quarter: 2012Q2

REPORT INFORMATION
  Report Type: 
  Country: None (occurrence: None)
  Receive Date: 20120504
  Receipt Date: 20110725
  Transmission Date: 20120825
  Serious: No
  Sender: FDA-Public Use
  Company Number: US-TEVA-2011003880

PATIENT
  Sex: Male

DRUGS (3)
  1. NUVIGIL [Suspect]
     Indication: SLEEP APNOEA SYNDROME
     Route: 048
  2. NUVIGIL [Suspect]
     Indication: ASTHENIA
  3. CYMBALTA [Concomitant]

REACTIONS (4)
  - INSOMNIA [None]
  - HYPERHIDROSIS [None]
  - PSYCHOMOTOR HYPERACTIVITY [None]
  - TREMOR [None]
